FAERS Safety Report 4656238-1 (Version None)
Quarter: 2005Q2

REPORT INFORMATION
  Report Type: 
  Country: None (occurrence: None)
  Receive Date: 20050509
  Receipt Date: 20050308
  Transmission Date: 20051028
  Serious: No
  Sender: FDA-Public Use
  Company Number: US-GLAXOSMITHKLINE-A0548853A

PATIENT
  Age: 53 Year
  Sex: Male
  Weight: 69.5 kg

DRUGS (2)
  1. AVANDAMET [Suspect]
     Route: 048
     Dates: start: 20050214, end: 20050308
  2. COZAAR [Concomitant]

REACTIONS (3)
  - ASTHENIA [None]
  - DRY MOUTH [None]
  - FATIGUE [None]
